FAERS Safety Report 5735463-2 (Version None)
Quarter: 2008Q2

REPORT INFORMATION
  Report Type: 
  Country: None (occurrence: None)
  Receive Date: 20080508
  Receipt Date: 20080428
  Transmission Date: 20081010
  Serious: Yes (Other)
  Sender: FDA-Public Use
  Company Number: 2008-02676

PATIENT
  Age: 54 Year
  Sex: Male
  Weight: 136 kg

DRUGS (5)
  1. ANDRODERM [Suspect]
     Indication: BLOOD TESTOSTERONE DECREASED
     Dosage: DAILY, TRANSDERMAL
     Route: 062
  2. ANDROGEL [Suspect]
     Indication: BLOOD TESTOSTERONE DECREASED
     Dosage: 7.5 G, DAILY VIA PUMP, TOPICAL; 5 G, DAILY VIA PUMP, TOPICAL
     Route: 061
     Dates: start: 20070401, end: 20070701
  3. ANDROGEL [Suspect]
     Indication: BLOOD TESTOSTERONE DECREASED
     Dosage: 7.5 G, DAILY VIA PUMP, TOPICAL; 5 G, DAILY VIA PUMP, TOPICAL
     Route: 061
     Dates: start: 20070701
  4. OLMESARTAN (OLMESARTAN) [Concomitant]
  5. VARDENAFIL (VARDENAFIL) [Concomitant]

REACTIONS (5)
  - ACROMEGALY [None]
  - ERECTILE DYSFUNCTION [None]
  - NEOPLASM RECURRENCE [None]
  - PITUITARY TUMOUR BENIGN [None]
  - REACTION TO DRUG EXCIPIENTS [None]
